FAERS Safety Report 19275107 (Version 3)
Quarter: 2021Q2

REPORT INFORMATION
  Report Type: Spontaneous
  Country: GB (occurrence: GB)
  Receive Date: 20210519
  Receipt Date: 20210624
  Transmission Date: 20210717
  Serious: Yes (Hospitalization)
  Sender: FDA-Public Use
  Company Number: GB-PFIZER INC-2021409677

PATIENT
  Age: 87 Year
  Sex: Female

DRUGS (1)
  1. SOMAVERT [Suspect]
     Active Substance: PEGVISOMANT
     Dosage: 40 MG, 2X/WEEK

REACTIONS (5)
  - Hip fracture [Unknown]
  - COVID-19 [Unknown]
  - Product use issue [Unknown]
  - Fall [Unknown]
  - Off label use [Unknown]
